FAERS Safety Report 8267535-5 (Version None)
Quarter: 2012Q2

REPORT INFORMATION
  Report Type: 
  Country: None (occurrence: None)
  Receive Date: 20120409
  Receipt Date: 20120404
  Transmission Date: 20120825
  Serious: Yes (Other)
  Sender: FDA-Public Use
  Company Number: US-JNJFOC-20120402521

PATIENT
  Age: 78 Year
  Sex: Male
  Weight: 68.04 kg

DRUGS (4)
  1. COOL MINT LISTERINE [Suspect]
     Indication: GINGIVITIS
     Dosage: TWO TABLESPOONFULS, FOR MANY YEARS
     Route: 048
  2. GLIPIZIDE [Concomitant]
     Indication: DIABETES MELLITUS
     Route: 065
  3. COOL MINT LISTERINE [Suspect]
     Indication: BREATH ODOUR
     Dosage: TWO TABLESPOONFULS, FOR MANY YEARS
     Route: 048
  4. BENAZEPRIL HYDROCHLORIDE [Concomitant]
     Indication: HYPERTENSION
     Route: 065

REACTIONS (2)
  - GINGIVITIS [None]
  - DRUG INEFFECTIVE [None]
